FAERS Safety Report 6963526-2 (Version None)
Quarter: 2010Q3

REPORT INFORMATION
  Report Type: 
  Country: None (occurrence: None)
  Receive Date: 20100823
  Receipt Date: 20100527
  Transmission Date: 20110219
  Serious: No
  Sender: FDA-Public Use
  Company Number: 012925

PATIENT
  Sex: Male
  Weight: 185 kg

DRUGS (23)
  1. CIMZIA [Suspect]
     Indication: CROHN'S DISEASE
     Dosage: SEE IMAGE
     Dates: start: 20100101
  2. CIMZIA [Suspect]
     Indication: CROHN'S DISEASE
     Dosage: SEE IMAGE
     Dates: start: 20100101
  3. CIMZIA [Suspect]
     Indication: CROHN'S DISEASE
     Dosage: SEE IMAGE
     Dates: start: 20100101
  4. ENTOCORT EC [Concomitant]
  5. COUMADIN [Concomitant]
  6. PROBIOTICA [Concomitant]
  7. TEA, GREEN [Concomitant]
  8. KOREAN GINSENG /01384001/ [Concomitant]
  9. MULTI-VITAMINS [Concomitant]
  10. VALERIAN EXTRACT [Concomitant]
  11. FLAXSEED OIL [Concomitant]
  12. GLUTATHIONE [Concomitant]
  13. COQ10 [Concomitant]
  14. VITAMIN B12 (CYANOCOBALAMIN AND DERIVATES) [Concomitant]
  15. VITAMIN D3 [Concomitant]
  16. ZINC [Concomitant]
  17. DHT /00157301/ [Concomitant]
  18. LOPERAMIDE [Concomitant]
  19. NALTREXONE [Concomitant]
  20. PEPCID [Concomitant]
  21. CLARITIN /00917501/ [Concomitant]
  22. MINERAL TAB [Concomitant]
  23. IRON [Concomitant]

REACTIONS (4)
  - DIARRHOEA [None]
  - DRUG EFFECT DECREASED [None]
  - INJECTION SITE EXTRAVASATION [None]
  - THERAPEUTIC RESPONSE UNEXPECTED [None]
